FAERS Safety Report 14608806 (Version 1)
Quarter: 2018Q1

REPORT INFORMATION
  Report Type: Spontaneous
  Country: US (occurrence: US)
  Receive Date: 20180306
  Receipt Date: 20180306
  Transmission Date: 20180509
  Serious: Yes (Other)
  Sender: FDA-Public Use
  Company Number: None

PATIENT
  Age: 71 Year
  Sex: Male
  Weight: 85.5 kg

DRUGS (14)
  1. TARAZOSIN [Concomitant]
     Active Substance: TERAZOSIN HYDROCHLORIDE ANHYDROUS
  2. LEVETRIACETAM [Concomitant]
     Active Substance: LEVETIRACETAM
  3. MULTIVITAMIN [Concomitant]
     Active Substance: VITAMINS
  4. MAGNESIUM [Concomitant]
     Active Substance: MAGNESIUM
  5. GABAPENTIN. [Concomitant]
     Active Substance: GABAPENTIN
  6. IMODIUM [Concomitant]
     Active Substance: LOPERAMIDE HYDROCHLORIDE
  7. METOPROLOL. [Concomitant]
     Active Substance: METOPROLOL
  8. ASPIRIN. [Concomitant]
     Active Substance: ASPIRIN
  9. ELIQUIS [Suspect]
     Active Substance: APIXABAN
     Indication: ATRIAL FIBRILLATION
     Dosage: ?          QUANTITY:14 TABLET(S);?
     Route: 048
     Dates: start: 20180209, end: 20180302
  10. VITAMIN B-COMPLEX [Concomitant]
     Active Substance: DEXPANTHENOL\NIACINAMIDE\PYRIDOXINE HYDROCHLORIDE\RIBOFLAVIN 5^-PHOSPHATE SODIUM\THIAMINE HYDROCHLORIDE
  11. MUCUS ER MAX [Concomitant]
     Active Substance: GUAIFENESIN
  12. PRIMIDONE. [Concomitant]
     Active Substance: PRIMIDONE
  13. AMBIEN [Concomitant]
     Active Substance: ZOLPIDEM TARTRATE
  14. IBUPROFEN. [Concomitant]
     Active Substance: IBUPROFEN

REACTIONS (3)
  - Abdominal pain [None]
  - Diarrhoea [None]
  - Abdominal pain upper [None]

NARRATIVE: CASE EVENT DATE: 20180209
